FAERS Safety Report 4298032-X (Version None)
Quarter: 2004Q1

REPORT INFORMATION
  Report Type: 
  Country: None (occurrence: None)
  Receive Date: 20040218
  Receipt Date: 20011016
  Transmission Date: 20041129
  Serious: Yes (Other)
  Sender: FDA-Public Use
  Company Number: US-BRISTOL-MYERS SQUIBB COMPANY-11531712

PATIENT
  Age: 57 Year
  Sex: Female

DRUGS (9)
  1. STADOL [Suspect]
     Indication: MIGRAINE
     Route: 045
  2. STADOL [Suspect]
     Indication: MIGRAINE
  3. PHENERGAN [Concomitant]
  4. LORTAB [Concomitant]
  5. XANAX [Concomitant]
  6. TYLENOL W/ CODEINE NO. 3 [Concomitant]
  7. INDERAL [Concomitant]
  8. MELLARIL [Concomitant]
  9. PROPULSID [Concomitant]

REACTIONS (2)
  - ANXIETY DISORDER [None]
  - DEPENDENCE [None]
